FAERS Safety Report 15419660 (Version 2)
Quarter: 2018Q4

REPORT INFORMATION
  Report Type: Spontaneous
  Country: US (occurrence: US)
  Receive Date: 20180924
  Receipt Date: 20181211
  Transmission Date: 20190204
  Serious: Yes (Other)
  Sender: FDA-Public Use
  Company Number: US-LEXICON PHARMACEUTICALS, INC-18-1606-01161

PATIENT
  Age: 77 Year
  Sex: Male

DRUGS (29)
  1. METOPROLOL TARTRATE. [Concomitant]
     Active Substance: METOPROLOL TARTRATE
  2. NIASPAN [Concomitant]
     Active Substance: NIACIN
  3. PARICALCITOL. [Concomitant]
     Active Substance: PARICALCITOL
  4. VITAMIN D3 [Concomitant]
     Active Substance: CHOLECALCIFEROL
  5. LANREOTIDE [Concomitant]
     Active Substance: LANREOTIDE
     Dates: start: 20160520
  6. TELOTRISTAT ETHYL [Suspect]
     Active Substance: TELOTRISTAT ETHYL
     Indication: CARCINOID SYNDROME
     Route: 048
     Dates: start: 20171003
  7. ASCRIPTIN [Concomitant]
     Active Substance: ASPIRIN
  8. CALCIUM [Concomitant]
     Active Substance: CALCIUM
  9. FOLIC ACID. [Concomitant]
     Active Substance: FOLIC ACID
  10. IRON [Concomitant]
     Active Substance: IRON
  11. KLOR-CON [Concomitant]
     Active Substance: POTASSIUM CHLORIDE
  12. VITAMIN B12 [Concomitant]
     Active Substance: CYANOCOBALAMIN
  13. BUMETANIDE. [Concomitant]
     Active Substance: BUMETANIDE
  14. CETIRIZINE [Concomitant]
     Active Substance: CETIRIZINE HYDROCHLORIDE
  15. COMBIVENT RESPIMAT [Concomitant]
     Active Substance: ALBUTEROL SULFATE\IPRATROPIUM BROMIDE
  16. FLUTICASONE PROP [Concomitant]
     Active Substance: FLUTICASONE PROPIONATE
  17. HYDROCODONE BITARTRATE. [Concomitant]
     Active Substance: HYDROCODONE BITARTRATE
  18. NITROSTAT [Concomitant]
     Active Substance: NITROGLYCERIN
  19. TYLENOL [Concomitant]
     Active Substance: ACETAMINOPHEN
  20. BIOTIN [Concomitant]
     Active Substance: BIOTIN
  21. FISH OIL [Concomitant]
     Active Substance: FISH OIL
  22. LOSARTAN. [Concomitant]
     Active Substance: LOSARTAN
  23. JANUVIA [Concomitant]
     Active Substance: SITAGLIPTIN PHOSPHATE
  24. SIMVASTATIN. [Concomitant]
     Active Substance: SIMVASTATIN
  25. DIPHENHYDRAM [Concomitant]
  26. ISOSORBIDE MONONITRATE. [Concomitant]
     Active Substance: ISOSORBIDE MONONITRATE
  27. VITAMIN C [Concomitant]
     Active Substance: ASCORBIC ACID
  28. DONEPEZIL. [Concomitant]
     Active Substance: DONEPEZIL
  29. INSULIN CARTRIDGE [Concomitant]

REACTIONS (3)
  - Fall [Unknown]
  - Off label use [Unknown]
  - Ligament sprain [Unknown]

NARRATIVE: CASE EVENT DATE: 20171003
